FAERS Safety Report 12854004 (Version 2)
Quarter: 2017Q1

REPORT INFORMATION
  Report Type: Spontaneous
  Country: BR (occurrence: BR)
  Receive Date: 20161017
  Receipt Date: 20170307
  Transmission Date: 20170428
  Serious: Yes (Other)
  Sender: FDA-Public Use
  Company Number: BR-PFIZER INC-2016479780

PATIENT
  Age: 42 Year
  Sex: Female
  Weight: 77 kg

DRUGS (2)
  1. DOSTINEX [Suspect]
     Active Substance: CABERGOLINE
     Dosage: UNK
     Dates: start: 2015
  2. DOSTINEX [Suspect]
     Active Substance: CABERGOLINE
     Indication: BLOOD PROLACTIN ABNORMAL
     Dosage: 1 MG, WEEKLY
     Dates: start: 2013

REACTIONS (1)
  - Prolactin-producing pituitary tumour [Unknown]

NARRATIVE: CASE EVENT DATE: 2013
